FAERS Safety Report 6297420-X (Version None)
Quarter: 2009Q3

REPORT INFORMATION
  Report Type: 
  Country: None (occurrence: None)
  Receive Date: 20090805
  Receipt Date: 20090608
  Transmission Date: 20100115
  Serious: No
  Sender: FDA-Public Use
  Company Number: US-BAYER-200923857NA

PATIENT
  Age: 34 Year
  Sex: Female
  Weight: 57 kg

DRUGS (2)
  1. ULTRAVIST (PHARMACY BULK) [Suspect]
     Indication: COMPUTERISED TOMOGRAM ABDOMEN
     Dosage: TOTAL DAILY DOSE: 100 ML  UNIT DOSE: 500 ML
     Route: 042
     Dates: start: 20090602, end: 20090602
  2. EZ CAT [Concomitant]
     Dosage: GIVEN 2 HRS PRIOR AND 5 MINS PRIOR TO TEST
     Route: 048
     Dates: start: 20090602, end: 20090602

REACTIONS (3)
  - PRURITUS [None]
  - SNEEZING [None]
  - THROAT IRRITATION [None]
